FAERS Safety Report 5248423-5 (Version None)
Quarter: 2007Q1

REPORT INFORMATION
  Report Type: 
  Country: None (occurrence: None)
  Receive Date: 20070222
  Receipt Date: 20070207
  Transmission Date: 20070707
  Serious: Yes (Hospitalization)
  Sender: FDA-Public Use
  Company Number: E3810-00635-SPO-US

PATIENT
  Age: 72 Year
  Sex: Female
  Weight: 68 kg

DRUGS (5)
  1. ACIPHEX [Suspect]
     Indication: GASTROOESOPHAGEAL REFLUX DISEASE
     Dosage: 20 MG, ORAL
     Route: 048
     Dates: start: 20040101
  2. BLOOD PRESSURE MEDICATION [Concomitant]
  3. NASAL SPRAY [Concomitant]
  4. FOSAMAX D (ALENDRONATE SODIUM) [Concomitant]
  5. OXACAL [Concomitant]

REACTIONS (2)
  - BONE DISORDER [None]
  - HIP FRACTURE [None]
